FAERS Safety Report 4512064-5 (Version None)
Quarter: 2004Q4

REPORT INFORMATION
  Report Type: 
  Country: None (occurrence: None)
  Receive Date: 20041123
  Receipt Date: 20041116
  Transmission Date: 20050328
  Serious: Yes (Other)
  Sender: FDA-Public Use
  Company Number: HQWYE501917NOV04

PATIENT
  Age: 23 Year
  Sex: Female

DRUGS (3)
  1. ALESSE [Suspect]
     Dosage: 1 TABLET 1X PER 1 DAY, ORAL
     Route: 048
     Dates: start: 20041114, end: 20041116
  2. PALAFER (FERROUS FUMARATE) [Concomitant]
  3. TETRACYCLINE [Concomitant]

REACTIONS (4)
  - CHEST PAIN [None]
  - DIZZINESS [None]
  - LOSS OF CONSCIOUSNESS [None]
  - PAIN IN EXTREMITY [None]
